FAERS Safety Report 5469543-6 (Version None)
Quarter: 2007Q3

REPORT INFORMATION
  Report Type: 
  Country: None (occurrence: None)
  Receive Date: 20070927
  Receipt Date: 20070919
  Transmission Date: 20080115
  Serious: Yes (Other)
  Sender: FDA-Public Use
  Company Number: B0488680A

PATIENT
  Age: 62 Year
  Sex: Female

DRUGS (4)
  1. SERETIDE [Suspect]
     Indication: BRONCHITIS
     Dosage: 250MG TWICE PER DAY
     Route: 055
     Dates: start: 20070611, end: 20070621
  2. SPIRIVA [Suspect]
     Indication: BRONCHITIS
     Route: 055
     Dates: start: 20070611, end: 20070621
  3. PREDNISOLONE [Concomitant]
     Route: 065
  4. CLARITHROMYCIN [Concomitant]

REACTIONS (7)
  - CONFUSIONAL STATE [None]
  - COORDINATION ABNORMAL [None]
  - DIZZINESS [None]
  - GAIT DISTURBANCE [None]
  - TREMOR [None]
  - URINE FLOW DECREASED [None]
  - XEROPHTHALMIA [None]
